FAERS Safety Report 7176839-9 (Version None)
Quarter: 2010Q4

REPORT INFORMATION
  Report Type: 
  Country: None (occurrence: None)
  Receive Date: 20101220
  Receipt Date: 20101215
  Transmission Date: 20110411
  Serious: Yes (Hospitalization)
  Sender: FDA-Public Use
  Company Number: US-BRISTOL-MYERS SQUIBB COMPANY-15445646

PATIENT
  Age: 68 Year
  Sex: Male
  Weight: 81 kg

DRUGS (31)
  1. CETUXIMAB [Suspect]
     Indication: NON-SMALL CELL LUNG CANCER
     Dosage: RECENT DOSE(3RD):13OCT10
     Route: 042
     Dates: start: 20100929
  2. CISPLATIN [Suspect]
     Indication: NON-SMALL CELL LUNG CANCER
     Dosage: INTERRUPTED ON 06DEC10
     Route: 042
     Dates: start: 20100929
  3. GEMCITABINE [Suspect]
     Indication: NON-SMALL CELL LUNG CANCER
     Dosage: INTERRUPTED ON 06DEC10
     Route: 042
     Dates: start: 20100929
  4. ANZEMET [Concomitant]
     Indication: NAUSEA
     Route: 048
     Dates: start: 20101110
  5. DECADRON [Concomitant]
     Indication: PREMEDICATION
     Dosage: 4MG PO 10NOV10
     Route: 042
     Dates: start: 20101006
  6. DECADRON [Concomitant]
     Indication: ASTHENIA
     Dosage: 4MG PO 10NOV10
     Route: 042
     Dates: start: 20101006
  7. DECADRON [Concomitant]
     Indication: NAUSEA
     Dosage: 4MG PO 10NOV10
     Route: 042
     Dates: start: 20101006
  8. CLARITIN [Concomitant]
     Indication: COUGH
     Route: 048
     Dates: start: 20100912
  9. CLARITIN [Concomitant]
     Indication: HYPERSENSITIVITY
     Route: 048
     Dates: start: 20100912
  10. AMLODIPINE [Concomitant]
     Indication: BLOOD PRESSURE
     Route: 048
     Dates: start: 20000101
  11. ATENOLOL [Concomitant]
     Indication: BLOOD PRESSURE
     Route: 048
     Dates: start: 20000101
  12. ATENOLOL [Concomitant]
     Indication: ANGINA PECTORIS
     Route: 048
     Dates: start: 20000101
  13. WELLBUTRIN SR [Concomitant]
     Indication: DEPRESSION
     Route: 048
     Dates: start: 20000101
  14. ALBUTEROL [Concomitant]
     Indication: CHRONIC OBSTRUCTIVE PULMONARY DISEASE
     Dosage: 2 PUFFS
     Route: 055
     Dates: start: 20000101
  15. INSULIN [Concomitant]
     Indication: DIABETES MELLITUS
     Dosage: 1DF=FOR EACH 10 PTS GREATER THAN 140/MAX 25U
     Route: 058
     Dates: start: 20100821
  16. METFORMIN HCL [Concomitant]
     Indication: DIABETES MELLITUS
     Route: 048
     Dates: start: 20090901
  17. PRAVASTATIN SODIUM [Concomitant]
     Indication: BLOOD CHOLESTEROL INCREASED
     Route: 048
     Dates: start: 20000101
  18. NITROGLYCERIN [Concomitant]
     Indication: ANGINA PECTORIS
     Route: 048
     Dates: start: 20000101
  19. NITROGLYCERIN [Concomitant]
     Indication: ANGINA PECTORIS
     Dosage: NITRO SPRAY PUMP
     Route: 048
     Dates: start: 20000101
  20. LANTUS [Concomitant]
     Indication: DIABETES MELLITUS
     Dosage: 1DF=10 UT
     Route: 058
     Dates: start: 20100920
  21. DARVOCET [Concomitant]
     Indication: PAIN
     Route: 048
     Dates: start: 20100924
  22. PRILOSEC [Concomitant]
     Indication: DYSPEPSIA
     Route: 048
     Dates: start: 20101006
  23. COMPAZINE [Concomitant]
     Indication: NAUSEA
     Route: 048
     Dates: start: 20100929
  24. ATIVAN [Concomitant]
     Indication: NAUSEA
     Dosage: 1DF=0.5-1MG
     Route: 048
     Dates: start: 20100929
  25. MARINOL [Concomitant]
     Indication: APPETITE DISORDER
     Route: 048
     Dates: start: 20101103
  26. MARINOL [Concomitant]
     Indication: NAUSEA
     Route: 048
     Dates: start: 20101103
  27. HYOSCYAMINE [Concomitant]
     Indication: COUGH
     Route: 048
     Dates: start: 20101027
  28. DIFLUCAN [Concomitant]
     Indication: CANDIDIASIS
     Dosage: TAKE FOR 6D
     Route: 048
     Dates: start: 20101110
  29. METOCLOPRAMIDE [Concomitant]
     Indication: HICCUPS
     Route: 065
  30. DRONABINOL [Concomitant]
     Indication: NAUSEA
     Route: 065
  31. NOVOLIN R [Concomitant]

REACTIONS (1)
  - PULMONARY EMBOLISM [None]
